FAERS Safety Report 6268228-6 (Version None)
Quarter: 2009Q3

REPORT INFORMATION
  Report Type: 
  Country: None (occurrence: None)
  Receive Date: 20090714
  Receipt Date: 20090714
  Transmission Date: 20100115
  Serious: Yes (Hospitalization)
  Sender: FDA-Public Use
  Company Number: None

PATIENT
  Age: 49 Year
  Sex: Male
  Weight: 107.9561 kg

DRUGS (3)
  1. AMINO ACID ARGININE [Suspect]
     Indication: HEPATITIS ALCOHOLIC
     Dosage: ARGININE 3.5 GRAM QID PO  ONLY TWO DOSES ON ONE DAY
     Route: 048
     Dates: start: 20080207, end: 20080207
  2. LEUCINE, ISOLEUCINE AND [Suspect]
     Indication: CIRRHOSIS ALCOHOLIC
     Dosage: LEUCINE, ISOLEU, VALINE 2.5 G QID PO ONLY TWO DOSES ON ONE DAY
     Route: 048
     Dates: start: 20080207, end: 20080207
  3. LEUCINE, ISOLEUCINE AND [Suspect]
     Indication: MALNUTRITION
     Dosage: LEUCINE, ISOLEU, VALINE 2.5 G QID PO ONLY TWO DOSES ON ONE DAY
     Route: 048
     Dates: start: 20080207, end: 20080207

REACTIONS (2)
  - HYPONATRAEMIA [None]
  - RENAL FAILURE [None]
